FAERS Safety Report 9882817 (Version 1)
Quarter: 2014Q1

REPORT INFORMATION
  Report Type: Report from Study
  Country: US (occurrence: US)
  Receive Date: 20140207
  Receipt Date: 20140207
  Transmission Date: 20141002
  Serious: Yes (Hospitalization, Other)
  Sender: FDA-Public Use
  Company Number: US-ABBVIE-14P-163-1196228-00

PATIENT
  Age: 54 Year
  Sex: Female
  Weight: 76.27 kg

DRUGS (4)
  1. HUMIRA [Suspect]
     Indication: CROHN^S DISEASE
     Dates: start: 2007, end: 201212
  2. HUMIRA [Suspect]
     Dosage: ON DAY 15
     Dates: start: 200708, end: 200708
  3. HUMIRA [Suspect]
     Dosage: INITIAL DOSE
     Dates: start: 2007, end: 2007
  4. ASACOL [Concomitant]
     Indication: CROHN^S DISEASE

REACTIONS (7)
  - Limb crushing injury [Recovering/Resolving]
  - Road traffic accident [Recovered/Resolved]
  - Limb crushing injury [Recovering/Resolving]
  - Spinal fracture [Recovered/Resolved]
  - Impaired healing [Recovering/Resolving]
  - Localised infection [Recovered/Resolved]
  - Osteoporosis [Not Recovered/Not Resolved]
